FAERS Safety Report 11105909 (Version 7)
Quarter: 2015Q3

REPORT INFORMATION
  Report Type: Report from Study
  Country: FR (occurrence: FR)
  Receive Date: 20150512
  Receipt Date: 20150904
  Transmission Date: 20151125
  Serious: Yes (Life-Threatening, Hospitalization)
  Sender: FDA-Public Use
  Company Number: FR-JNJFOC-20150420205

PATIENT
  Age: 80 Year
  Sex: Male
  Weight: 60 kg

DRUGS (4)
  1. ZYTIGA [Suspect]
     Active Substance: ABIRATERONE ACETATE
     Indication: PROSTATE CANCER METASTATIC
     Route: 048
     Dates: start: 20141212, end: 20150422
  2. FIRMAGON [Suspect]
     Active Substance: DEGARELIX ACETATE
     Indication: PROSTATE CANCER
     Route: 065
     Dates: start: 20140505
  3. PYOSTACINE [Concomitant]
     Active Substance: PRISTINAMYCIN
     Route: 065
     Dates: start: 20150113
  4. SOLUPRED [Concomitant]
     Active Substance: PREDNISOLONE
     Route: 048
     Dates: start: 20141214

REACTIONS (6)
  - Anaemia [Not Recovered/Not Resolved]
  - Sepsis [Recovering/Resolving]
  - Lung infection [Recovering/Resolving]
  - Cachexia [Not Recovered/Not Resolved]
  - Thrombocytopenia [Not Recovered/Not Resolved]
  - Pulmonary embolism [Recovered/Resolved]

NARRATIVE: CASE EVENT DATE: 20150116
